FAERS Safety Report 5405211-4 (Version None)
Quarter: 2007Q3

REPORT INFORMATION
  Report Type: 
  Country: None (occurrence: None)
  Receive Date: 20070803
  Receipt Date: 20070730
  Transmission Date: 20080115
  Serious: Yes (Hospitalization)
  Sender: FDA-Public Use
  Company Number: US-ELI_LILLY_AND_COMPANY-US200707006997

PATIENT
  Sex: Male

DRUGS (3)
  1. HUMALOG [Suspect]
     Indication: DIABETES MELLITUS
     Dates: start: 20070401
  2. TOPROL-XL [Concomitant]
     Dosage: 2 UNK, DAILY (1/D)
  3. DIOVAN [Concomitant]
     Dosage: 2 UNK, DAILY (1/D)

REACTIONS (1)
  - HYPERTENSION [None]
